FAERS Safety Report 16002832 (Version 2)
Quarter: 2019Q2

REPORT INFORMATION
  Report Type: Spontaneous
  Country: US (occurrence: US)
  Receive Date: 20190225
  Receipt Date: 20190426
  Transmission Date: 20190711
  Serious: No
  Sender: FDA-Public Use
  Company Number: US-SA-2019SA046901

PATIENT
  Age: 57 Year
  Sex: Female

DRUGS (2)
  1. AUBAGIO [Suspect]
     Active Substance: TERIFLUNOMIDE
     Dosage: UNK UNK, QD
     Route: 048
     Dates: start: 20190101
  2. OMEPRAZOLE. [Suspect]
     Active Substance: OMEPRAZOLE

REACTIONS (6)
  - Pruritus [Recovered/Resolved]
  - Rash [Recovered/Resolved]
  - Tongue discomfort [Unknown]
  - Alopecia [Unknown]
  - Memory impairment [Unknown]
  - Glossodynia [Unknown]

NARRATIVE: CASE EVENT DATE: 20190214
